FAERS Safety Report 10225936 (Version 1)
Quarter: 2014Q2

REPORT INFORMATION
  Report Type: Spontaneous
  Country: US (occurrence: US)
  Receive Date: 20140609
  Receipt Date: 20140609
  Transmission Date: 20141212
  Serious: Yes (Hospitalization)
  Sender: FDA-Public Use
  Company Number: US-ASTELLAS-2013US004529

PATIENT
  Age: 70 Year
  Sex: Male

DRUGS (1)
  1. PROGRAF [Suspect]
     Indication: LIVER TRANSPLANT
     Dosage: 0.5 MG IN THE MORNING AND 1 MG AT BEDTIME
     Route: 048
     Dates: start: 20081031

REACTIONS (1)
  - Myocardial infarction [Recovered/Resolved]
